FAERS Safety Report 5903125-4 (Version None)
Quarter: 2008Q3

REPORT INFORMATION
  Report Type: 
  Country: None (occurrence: None)
  Receive Date: 20080930
  Receipt Date: 20080926
  Transmission Date: 20090109
  Serious: Yes (Hospitalization)
  Sender: FDA-Public Use
  Company Number: PHHO1999IT00658

PATIENT
  Sex: Male
  Weight: 71 kg

DRUGS (3)
  1. SIMULECT SIC+ [Suspect]
     Route: 042
     Dates: start: 19981107
  2. NEORAL [Suspect]
     Dates: start: 19981107, end: 19981212
  3. AZATHIOPRINE [Concomitant]

REACTIONS (2)
  - CHOLESTASIS [None]
  - HEPATOCELLULAR INJURY [None]
